FAERS Safety Report 9269419 (Version 3)
Quarter: 2013Q3

REPORT INFORMATION
  Report Type: Spontaneous
  Country: DE (occurrence: DE)
  Receive Date: 20130503
  Receipt Date: 20130808
  Transmission Date: 20140515
  Serious: Yes (Hospitalization)
  Sender: FDA-Public Use
  Company Number: DE-BAYER-2013-052496

PATIENT
  Age: 51 Year
  Sex: Male
  Weight: 60 kg

DRUGS (1)
  1. NEXAVAR [Suspect]
     Indication: HEPATIC CANCER METASTATIC
     Dosage: UNK

REACTIONS (3)
  - Large intestinal haemorrhage [Recovered/Resolved]
  - Gastrointestinal ulcer [Recovering/Resolving]
  - Haemorrhage [Recovered/Resolved]
